FAERS Safety Report 4417758-8 (Version None)
Quarter: 2004Q3

REPORT INFORMATION
  Report Type: 
  Country: None (occurrence: None)
  Receive Date: 20040803
  Receipt Date: 20040719
  Transmission Date: 20050211
  Serious: Yes (Life-Threatening, Hospitalization)
  Sender: FDA-Public Use
  Company Number: 04P-167-0260689-00

PATIENT
  Sex: Female
  Weight: 118 kg

DRUGS (6)
  1. MERIDIA [Suspect]
  2. ASPIRIN [Concomitant]
  3. FUROSEMIDE [Concomitant]
  4. GLIMEPIRIDE [Concomitant]
  5. LACTULOSE [Concomitant]
  6. SENNA [Concomitant]

REACTIONS (1)
  - HEPATITIS [None]
